FAERS Safety Report 23825339 (Version 1)
Quarter: 2024Q2

REPORT INFORMATION
  Report Type: Spontaneous
  Country: NL (occurrence: NL)
  Receive Date: 20240507
  Receipt Date: 20240507
  Transmission Date: 20240717
  Serious: Yes (Life-Threatening)
  Sender: FDA-Public Use
  Company Number: None

PATIENT
  Age: 47 Year
  Sex: Male
  Weight: 80 kg

DRUGS (2)
  1. DIAZEPAM [Suspect]
     Active Substance: DIAZEPAM
     Indication: Anxiety
     Dosage: DIAZEPAM TABLET 5MG / BRAND NAME NOT SPECIFIED
     Route: 065
     Dates: start: 20230810, end: 20230817
  2. CITALOPRAM [Concomitant]
     Active Substance: CITALOPRAM\CITALOPRAM HYDROBROMIDE
     Indication: Product used for unknown indication
     Dosage: CITALOPRAM TABLET COATED 20MG / CIPRAMIL TABLET COATED 20MG,10 MG PER DAY
     Route: 065

REACTIONS (1)
  - Respiratory depression [Recovered/Resolved]
